APPROVED DRUG PRODUCT: ARIPIPRAZOLE
Active Ingredient: ARIPIPRAZOLE
Strength: 10MG
Dosage Form/Route: TABLET;ORAL
Application: A207105 | Product #003 | TE Code: AB
Applicant: ALKEM LABORATORIES LTD
Approved: Feb 21, 2019 | RLD: No | RS: No | Type: RX